FAERS Safety Report 19923765 (Version 6)
Quarter: 2022Q1

REPORT INFORMATION
  Report Type: Spontaneous
  Country: ES (occurrence: ES)
  Receive Date: 20211005
  Receipt Date: 20220302
  Transmission Date: 20220423
  Serious: Yes (Death, Hospitalization)
  Sender: FDA-Public Use
  Company Number: ES-CELGENE-ESP-20210907687

PATIENT
  Age: 86 Year
  Sex: Male
  Weight: 72 kg

DRUGS (4)
  1. AZACITIDINE [Suspect]
     Active Substance: AZACITIDINE
     Indication: Acute myeloid leukaemia
     Route: 058
     Dates: start: 20201221
  2. PEVONEDISTAT [Suspect]
     Active Substance: PEVONEDISTAT
     Indication: Acute myeloid leukaemia
     Route: 041
     Dates: start: 20201221
  3. VORICONAZOLE [Concomitant]
     Active Substance: VORICONAZOLE
     Indication: Hypertension
     Route: 065
  4. CIPROFLOXACIN [Concomitant]
     Active Substance: CIPROFLOXACIN
     Indication: Acute myeloid leukaemia
     Route: 065
     Dates: start: 20210816

REACTIONS (1)
  - Cognitive disorder [Fatal]

NARRATIVE: CASE EVENT DATE: 20210919
